FAERS Safety Report 23256951 (Version 2)
Quarter: 2024Q1

REPORT INFORMATION
  Report Type: Spontaneous
  Country: US (occurrence: None)
  Receive Date: 20231204
  Receipt Date: 20240105
  Transmission Date: 20240410
  Serious: No
  Sender: FDA-Public Use
  Company Number: 2023A257065

PATIENT

DRUGS (1)
  1. CALQUENCE [Suspect]
     Active Substance: ACALABRUTINIB
     Indication: B-cell small lymphocytic lymphoma recurrent
     Route: 048

REACTIONS (6)
  - Platelet count abnormal [Unknown]
  - Peripheral swelling [Unknown]
  - Arthralgia [Unknown]
  - Skin haemorrhage [Unknown]
  - Rash macular [Unknown]
  - Product dose omission issue [Unknown]
